FAERS Safety Report 13950779 (Version 1)
Quarter: 2017Q3

REPORT INFORMATION
  Report Type: Spontaneous
  Country: US (occurrence: US)
  Receive Date: 20170908
  Receipt Date: 20170908
  Transmission Date: 20171128
  Serious: No
  Sender: FDA-Public Use
  Company Number: US-ROCHE-1134914

PATIENT
  Sex: Female

DRUGS (30)
  1. RITUXAN [Suspect]
     Active Substance: RITUXIMAB
     Indication: WALDENSTROM^S MACROGLOBULINAEMIA
     Route: 065
     Dates: start: 20010102
  2. TYLENOL [Concomitant]
     Active Substance: ACETAMINOPHEN
     Route: 048
     Dates: start: 20010123
  3. CYTOXAN [Concomitant]
     Active Substance: CYCLOPHOSPHAMIDE
     Route: 065
     Dates: start: 20001124
  4. CYTOXAN [Concomitant]
     Active Substance: CYCLOPHOSPHAMIDE
     Route: 065
     Dates: start: 20010104
  5. BENADRYL [Concomitant]
     Active Substance: DIPHENHYDRAMINE HYDROCHLORIDE
     Route: 065
     Dates: start: 20010306
  6. TYLENOL [Concomitant]
     Active Substance: ACETAMINOPHEN
     Route: 048
     Dates: start: 20010403
  7. DECADRON [Concomitant]
     Active Substance: DEXAMETHASONE
     Route: 065
     Dates: start: 20010125
  8. BENADRYL [Concomitant]
     Active Substance: DIPHENHYDRAMINE HYDROCHLORIDE
     Route: 065
     Dates: start: 20010123
  9. TYLENOL [Concomitant]
     Active Substance: ACETAMINOPHEN
     Route: 048
     Dates: start: 20010102
  10. DECADRON [Concomitant]
     Active Substance: DEXAMETHASONE
     Route: 065
  11. DECADRON [Concomitant]
     Active Substance: DEXAMETHASONE
     Route: 065
     Dates: start: 20010308
  12. CYTOXAN [Concomitant]
     Active Substance: CYCLOPHOSPHAMIDE
     Route: 065
     Dates: start: 20010308
  13. BENADRYL [Concomitant]
     Active Substance: DIPHENHYDRAMINE HYDROCHLORIDE
     Route: 065
     Dates: start: 20010403
  14. RITUXAN [Suspect]
     Active Substance: RITUXIMAB
     Route: 065
     Dates: start: 20010306
  15. ANZEMET [Concomitant]
     Active Substance: DOLASETRON MESYLATE
     Route: 065
     Dates: start: 20010308
  16. TYLENOL [Concomitant]
     Active Substance: ACETAMINOPHEN
     Route: 048
     Dates: start: 20010306
  17. DECADRON [Concomitant]
     Active Substance: DEXAMETHASONE
     Route: 065
  18. CYTOXAN [Concomitant]
     Active Substance: CYCLOPHOSPHAMIDE
     Route: 065
     Dates: start: 20001102
  19. CYTOXAN [Concomitant]
     Active Substance: CYCLOPHOSPHAMIDE
     Route: 065
     Dates: start: 20010125
  20. ANZEMET [Concomitant]
     Active Substance: DOLASETRON MESYLATE
     Route: 065
     Dates: start: 20010125
  21. ANZEMET [Concomitant]
     Active Substance: DOLASETRON MESYLATE
     Route: 065
     Dates: start: 20010405
  22. CYTOXAN [Concomitant]
     Active Substance: CYCLOPHOSPHAMIDE
     Route: 065
     Dates: start: 20010405
  23. RITUXAN [Suspect]
     Active Substance: RITUXIMAB
     Route: 065
     Dates: start: 20010123
  24. ANZEMET [Concomitant]
     Active Substance: DOLASETRON MESYLATE
     Route: 065
     Dates: start: 20001124
  25. ANZEMET [Concomitant]
     Active Substance: DOLASETRON MESYLATE
     Route: 065
     Dates: start: 20010104
  26. DECADRON [Concomitant]
     Active Substance: DEXAMETHASONE
     Route: 065
     Dates: start: 20010104
  27. DECADRON [Concomitant]
     Active Substance: DEXAMETHASONE
     Route: 065
     Dates: start: 20010405
  28. BENADRYL [Concomitant]
     Active Substance: DIPHENHYDRAMINE HYDROCHLORIDE
     Route: 065
     Dates: start: 20010102
  29. RITUXAN [Suspect]
     Active Substance: RITUXIMAB
     Route: 065
     Dates: start: 20010403
  30. CYTOXAN [Concomitant]
     Active Substance: CYCLOPHOSPHAMIDE
     Route: 065
     Dates: start: 20010123

REACTIONS (7)
  - Asthenia [Unknown]
  - Nasopharyngitis [Unknown]
  - Decreased appetite [Unknown]
  - Nausea [Unknown]
  - Fatigue [Unknown]
  - Chills [Unknown]
  - Diarrhoea [Unknown]
